FAERS Safety Report 16588372 (Version 1)
Quarter: 2019Q3

REPORT INFORMATION
  Report Type: Report from Study
  Country: None (occurrence: BR)
  Receive Date: 20190717
  Receipt Date: 20190717
  Transmission Date: 20191004
  Serious: Yes (Other)
  Sender: FDA-Public Use
  Company Number: BR-ABBVIE-19K-020-2631623-00

PATIENT
  Age: 38 Year
  Sex: Male

DRUGS (2)
  1. HUMIRA [Suspect]
     Active Substance: ADALIMUMAB
     Route: 058
  2. HUMIRA [Suspect]
     Active Substance: ADALIMUMAB
     Indication: PSORIATIC ARTHROPATHY
     Route: 058
     Dates: start: 20180301

REACTIONS (17)
  - Therapeutic product effect incomplete [Unknown]
  - Hair growth abnormal [Recovered/Resolved]
  - Psoriatic arthropathy [Unknown]
  - Muscle atrophy [Unknown]
  - Pain of skin [Unknown]
  - Headache [Unknown]
  - Skin disorder [Unknown]
  - Contusion [Unknown]
  - Atrophy [Unknown]
  - Neuropathic muscular atrophy [Unknown]
  - Skin discolouration [Unknown]
  - Skin mass [Unknown]
  - Malaise [Unknown]
  - Fear [Unknown]
  - Pre-existing condition improved [Unknown]
  - Therapeutic response unexpected [Unknown]
  - Pain [Unknown]

NARRATIVE: CASE EVENT DATE: 201803
